FAERS Safety Report 8186226-2 (Version None)
Quarter: 2012Q1

REPORT INFORMATION
  Report Type: 
  Country: None (occurrence: None)
  Receive Date: 20120306
  Receipt Date: 20120301
  Transmission Date: 20120608
  Serious: No
  Sender: FDA-Public Use
  Company Number: US-PFIZER INC-2012056857

PATIENT
  Sex: Male
  Weight: 89.8 kg

DRUGS (3)
  1. SUTENT [Suspect]
     Indication: RENAL CANCER
     Dosage: 37.5MG ONCE DAILY ONE DAY AND 25MG ONCE DAILY ANOTHER DAY
     Route: 048
  2. CIMETIDINE [Concomitant]
     Indication: GASTROOESOPHAGEAL REFLUX DISEASE
     Dosage: DAILY
  3. OMEPRAZOLE [Concomitant]
     Indication: GASTROOESOPHAGEAL REFLUX DISEASE
     Dosage: DAILY

REACTIONS (3)
  - COUGH [None]
  - ERUCTATION [None]
  - INCREASED UPPER AIRWAY SECRETION [None]
